FAERS Safety Report 20431163 (Version 1)
Quarter: 2022Q1

REPORT INFORMATION
  Report Type: Report from Study
  Country: US (occurrence: US)
  Receive Date: 20220204
  Receipt Date: 20220204
  Transmission Date: 20220423
  Serious: Yes (Hospitalization)
  Sender: FDA-Public Use
  Company Number: None

PATIENT

DRUGS (9)
  1. ONCASPAR [Suspect]
     Active Substance: PEGASPARGASE
     Indication: Acute lymphocytic leukaemia
     Dosage: 3450 IU, ONE DOSE
     Route: 065
     Dates: start: 20190206, end: 20190206
  2. DAUNORUBICIN HYDROCHLORIDE [Suspect]
     Active Substance: DAUNORUBICIN HYDROCHLORIDE
     Indication: Acute lymphocytic leukaemia
     Dosage: UNK
     Route: 065
     Dates: start: 20181018, end: 20181108
  3. DEXAMETHASONE SODIUM SUCCINATE [Suspect]
     Active Substance: DEXAMETHASONE SODIUM SUCCINATE
     Indication: Acute lymphocytic leukaemia
     Dosage: UNK
     Route: 065
     Dates: start: 20181018, end: 20181108
  4. INOTUZUMAB OZOGAMICIN [Suspect]
     Active Substance: INOTUZUMAB OZOGAMICIN
     Indication: Acute lymphocytic leukaemia
     Dosage: UNK
     Route: 065
     Dates: start: 20181119, end: 20190102
  5. CYCLOPHOSPHAMIDE [Suspect]
     Active Substance: CYCLOPHOSPHAMIDE
     Indication: Acute lymphocytic leukaemia
     Dosage: 1740 MG, ONE DOSE
     Route: 065
     Dates: start: 20190123, end: 20190123
  6. CYTARABINE [Suspect]
     Active Substance: CYTARABINE
     Indication: Acute lymphocytic leukaemia
     Dosage: 1048 UNK
     Route: 065
     Dates: start: 20190123, end: 20190202
  7. MERCAPTOPURINE [Suspect]
     Active Substance: MERCAPTOPURINE
     Indication: Acute lymphocytic leukaemia
     Dosage: 1450 UNK
     Route: 065
     Dates: end: 20190205
  8. VINCRISTINE SULFATE [Suspect]
     Active Substance: VINCRISTINE SULFATE
     Indication: Acute lymphocytic leukaemia
     Dosage: 2 MG, ONE DOSE
     Route: 065
     Dates: start: 20190206, end: 20190206
  9. METHOTREXATE [Suspect]
     Active Substance: METHOTREXATE
     Indication: Acute lymphocytic leukaemia
     Dosage: 45 MG, UNK
     Dates: start: 20190123, end: 20190207

REACTIONS (2)
  - Febrile neutropenia [Recovered/Resolved]
  - Systemic candida [Recovered/Resolved]

NARRATIVE: CASE EVENT DATE: 20190211
